FAERS Safety Report 4736744-1 (Version None)
Quarter: 2005Q3

REPORT INFORMATION
  Report Type: 
  Country: None (occurrence: None)
  Receive Date: 20050808
  Receipt Date: 20050801
  Transmission Date: 20060218
  Serious: Yes (Hospitalization)
  Sender: FDA-Public Use
  Company Number: US-BOEHRINGER INGELHEIM PHARMACEUTICALS, INC.-2005-BP-13006BP

PATIENT
  Age: 69 Year
  Sex: Female

DRUGS (2)
  1. CLONIDINE HCL [Suspect]
     Indication: HYPERTENSION
     Route: 048
     Dates: end: 20030101
  2. CLONIDINE HCL [Suspect]
     Route: 048
     Dates: start: 20000101

REACTIONS (1)
  - CONVULSION [None]
